FAERS Safety Report 25755829 (Version 1)
Quarter: 2025Q3

REPORT INFORMATION
  Report Type: Spontaneous
  Country: EU (occurrence: EU)
  Receive Date: 20250903
  Receipt Date: 20250903
  Transmission Date: 20251020
  Serious: Yes (Hospitalization)
  Sender: AMGEN
  Company Number: EU-AMGEN-HRVSP2025171439

PATIENT
  Age: 56 Year
  Sex: Male

DRUGS (8)
  1. BEVACIZUMAB [Suspect]
     Active Substance: BEVACIZUMAB
     Indication: Rectal haemorrhage
     Route: 065
  2. TRANEXAMIC ACID [Concomitant]
     Active Substance: TRANEXAMIC ACID
     Indication: Rectal haemorrhage
  3. HUMAN RED BLOOD CELL [Concomitant]
     Active Substance: HUMAN RED BLOOD CELL
     Indication: Rectal haemorrhage
  4. FERRIC CARBOXYMALTOSE [Concomitant]
     Active Substance: FERRIC CARBOXYMALTOSE
     Indication: Rectal haemorrhage
  5. EFMOROCTOCOG ALFA [Concomitant]
     Active Substance: EFMOROCTOCOG ALFA
     Indication: Rectal haemorrhage
  6. FACTOR XIII CONCENTRATE (HUMAN) [Concomitant]
     Active Substance: FACTOR XIII CONCENTRATE (HUMAN)
     Indication: Rectal haemorrhage
  7. FIBRINOGEN [Concomitant]
     Active Substance: FIBRINOGEN HUMAN
     Indication: Rectal haemorrhage
  8. OCTREOTIDE [Concomitant]
     Active Substance: OCTREOTIDE
     Indication: Rectal haemorrhage

REACTIONS (11)
  - Adenovirus infection [Unknown]
  - Haematochezia [Unknown]
  - Shock haemorrhagic [Unknown]
  - Angiodysplasia [Unknown]
  - Haematuria [Unknown]
  - Rotavirus infection [Unknown]
  - Anti-erythrocyte antibody positive [Unknown]
  - Rectal ulcer haemorrhage [Recovering/Resolving]
  - Post procedural haemorrhage [Unknown]
  - Epistaxis [Unknown]
  - Off label use [Unknown]
